FAERS Safety Report 8776411 (Version 2)
Quarter: 2012Q4

REPORT INFORMATION
  Report Type: 
  Country: JP (occurrence: JP)
  Receive Date: 20120910
  Receipt Date: 20120921
  Transmission Date: 20130627
  Serious: Yes (Other)
  Sender: FDA-Public Use
  Company Number: PHHY2012JP076533

PATIENT
  Age: 72 Year
  Sex: Male

DRUGS (6)
  1. PREDNISOLONE [Suspect]
     Indication: INTERSTITIAL LUNG DISEASE
     Dosage: 15 mg, QD
     Route: 048
  2. PREDNISOLONE [Suspect]
     Dosage: 9 mg, QD
     Route: 048
  3. ETRETINATE [Suspect]
     Dosage: 60 mg, QD
     Route: 048
  4. ETRETINATE [Suspect]
     Dosage: 20 mg, QD
     Route: 048
  5. NEORAL [Concomitant]
     Indication: PUSTULAR PSORIASIS
  6. BETAMETHASONE BUTYRATE PROPIONATE [Concomitant]
     Route: 061

REACTIONS (12)
  - Pustular psoriasis [Recovered/Resolved]
  - Erythema [Recovered/Resolved]
  - Pyrexia [Recovered/Resolved]
  - Rash pustular [Recovered/Resolved]
  - Skin erosion [Recovered/Resolved]
  - Malaise [Recovered/Resolved]
  - Renal impairment [Recovered/Resolved]
  - Dehydration [Recovered/Resolved]
  - Interstitial lung disease [Recovered/Resolved]
  - Blood albumin decreased [None]
  - Blood calcium decreased [None]
  - Skin atrophy [None]
